FAERS Safety Report 7207157-8 (Version None)
Quarter: 2011Q1

REPORT INFORMATION
  Report Type: 
  Country: None (occurrence: None)
  Receive Date: 20110103
  Receipt Date: 20101217
  Transmission Date: 20110831
  Serious: Yes (Other)
  Sender: FDA-Public Use
  Company Number: US-ROCHE-707373

PATIENT
  Sex: Female
  Weight: 101.6 kg

DRUGS (10)
  1. PEGINTERFERON ALFA-2A [Suspect]
     Dosage: DOSE REDUCED
     Route: 058
     Dates: start: 20091101
  2. PROCRIT [Suspect]
     Route: 058
     Dates: start: 20100418
  3. RIBASPHERE [Suspect]
     Indication: HEPATITIS C
     Dosage: DIVIDED DOSES
     Route: 048
     Dates: start: 20091106
  4. NEUPOGEN [Suspect]
     Route: 058
     Dates: start: 20091123
  5. PEGINTERFERON ALFA-2A [Suspect]
     Dosage: DOSE INCREASED, WEEK 45
     Route: 058
     Dates: start: 20091201
  6. RIBASPHERE [Suspect]
     Dosage: INCREASED DOSE
     Route: 048
     Dates: start: 20091201
  7. RIBASPHERE [Suspect]
     Dosage: LOWERED DOSE, WEEK 41
     Route: 048
     Dates: start: 20100524
  8. PEGINTERFERON ALFA-2A [Suspect]
     Indication: HEPATITIS C
     Route: 058
     Dates: start: 20091106
  9. RIBASPHERE [Suspect]
     Dosage: REDUCED DOSE
     Route: 048
     Dates: start: 20091101
  10. RIBASPHERE [Suspect]
     Route: 048

REACTIONS (15)
  - WHITE BLOOD CELL COUNT DECREASED [None]
  - FATIGUE [None]
  - COUGH [None]
  - DIZZINESS [None]
  - RASH [None]
  - BACK PAIN [None]
  - ALOPECIA [None]
  - PLATELET COUNT DECREASED [None]
  - WEIGHT DECREASED [None]
  - ANAEMIA [None]
  - PANCYTOPENIA [None]
  - PAIN [None]
  - TRANSFUSION REACTION [None]
  - NAUSEA [None]
  - HAEMOGLOBIN ABNORMAL [None]
